FAERS Safety Report 17561084 (Version 1)
Quarter: 2020Q1

REPORT INFORMATION
  Report Type: Spontaneous
  Country: US (occurrence: US)
  Receive Date: 20200312
  Receipt Date: 20200312
  Transmission Date: 20200409
  Serious: Yes (Hospitalization)
  Sender: FDA-Public Use
  Company Number: None

PATIENT
  Age: 73 Year
  Sex: Male

DRUGS (2)
  1. OXYCODONE (OXYCODONE HCL 10MG TAB) [Suspect]
     Active Substance: OXYCODONE HYDROCHLORIDE
     Indication: PAIN
  2. GABAPENTIN. [Suspect]
     Active Substance: GABAPENTIN
     Indication: PAIN
     Route: 048

REACTIONS (8)
  - Food refusal [None]
  - Hypopnoea [None]
  - Mental status changes [None]
  - Hypoxia [None]
  - Confusional state [None]
  - Sedation [None]
  - Somnolence [None]
  - Miosis [None]

NARRATIVE: CASE EVENT DATE: 20191215
